FAERS Safety Report 11812394 (Version 1)
Quarter: 2015Q4

REPORT INFORMATION
  Report Type: Report from Study
  Country: BR (occurrence: BR)
  Receive Date: 20151208
  Receipt Date: 20151208
  Transmission Date: 20160305
  Serious: Yes (Death)
  Sender: FDA-Public Use
  Company Number: PHHY2012BR095801

PATIENT
  Sex: Male
  Weight: 53 kg

DRUGS (5)
  1. DESFERAL [Suspect]
     Active Substance: DEFEROXAMINE MESYLATE
     Indication: SERUM FERRITIN INCREASED
     Route: 065
  2. EXJADE [Suspect]
     Active Substance: DEFERASIROX
     Indication: APLASTIC ANAEMIA
     Dosage: 500 MG (20 MG/KG/DAY), BID
     Route: 065
  3. EXJADE [Suspect]
     Active Substance: DEFERASIROX
     Dosage: 1 DF (10 MG/KG/DAY), QD
     Route: 065
  4. SULFAMETHOXAZOLE [Concomitant]
     Active Substance: SULFAMETHOXAZOLE
     Indication: PRODUCT USED FOR UNKNOWN INDICATION
     Dosage: EVERY MONDAY, WEDNESDAY AND FRIDAYS
     Route: 065
  5. EXJADE [Suspect]
     Active Substance: DEFERASIROX
     Dosage: 2 DF OF 500 MG, QD
     Route: 048

REACTIONS (15)
  - Neoplasm [Fatal]
  - Aplastic anaemia [Fatal]
  - Weight decreased [Unknown]
  - Pain in extremity [Not Recovered/Not Resolved]
  - Nocturia [Unknown]
  - Pain [Recovering/Resolving]
  - Acute respiratory failure [Fatal]
  - Acute kidney injury [Fatal]
  - Renal disorder [Unknown]
  - Constipation [Unknown]
  - Serum ferritin increased [Not Recovered/Not Resolved]
  - Off label use [Unknown]
  - Renal disorder [Recovered/Resolved]
  - Poisoning [Unknown]
  - Feeling abnormal [Unknown]
